FAERS Safety Report 24326765 (Version 2)
Quarter: 2024Q3

REPORT INFORMATION
  Report Type: Spontaneous
  Country: PL (occurrence: PL)
  Receive Date: 20240917
  Receipt Date: 20240928
  Transmission Date: 20241016
  Serious: No
  Sender: MERCK
  Company Number: PL-PFIZER INC-PV202400115311

PATIENT
  Age: 73 Year
  Sex: Male

DRUGS (3)
  1. PEMBROLIZUMAB [Suspect]
     Active Substance: PEMBROLIZUMAB
     Indication: Lung squamous cell carcinoma stage IV
     Dosage: 200 MG - (4 CYCLES WITH CHEMOTHERAPY, THE FOLLOW BY 42 CYCLES MAINTENANCE THERAPY WITH PEMBROLIZUMAB
     Route: 042
     Dates: start: 20210906, end: 20240329
  2. PACLITAXEL [Concomitant]
     Active Substance: PACLITAXEL
     Indication: Lung squamous cell carcinoma stage IV
     Dosage: 200 MG/M2; 4 CYCLES
     Route: 042
     Dates: start: 20210906
  3. CARBOPLATIN [Concomitant]
     Active Substance: CARBOPLATIN
     Indication: Lung squamous cell carcinoma stage IV
     Dosage: 5 MG/ML/MIN, 4 CYCLES
     Dates: start: 20210906

REACTIONS (1)
  - Inappropriate schedule of product administration [Unknown]

NARRATIVE: CASE EVENT DATE: 20230101
